FAERS Safety Report 12400735 (Version 2)
Quarter: 2016Q2

REPORT INFORMATION
  Report Type: Spontaneous
  Country: US (occurrence: US)
  Receive Date: 20160525
  Receipt Date: 20160525
  Transmission Date: 20160815
  Serious: No
  Sender: FDA-Public Use
  Company Number: US-SA-2015SA096053

PATIENT
  Sex: Male

DRUGS (2)
  1. LANTUS [Suspect]
     Active Substance: INSULIN GLARGINE
     Route: 065
  2. LEVEMIR [Suspect]
     Active Substance: INSULIN DETEMIR
     Route: 065

REACTIONS (3)
  - Mobility decreased [Unknown]
  - Swelling [Unknown]
  - Glycosylated haemoglobin increased [Unknown]
